FAERS Safety Report 4299642-6 (Version None)
Quarter: 2004Q1

REPORT INFORMATION
  Report Type: 
  Country: None (occurrence: None)
  Receive Date: 20040217
  Receipt Date: 20040203
  Transmission Date: 20041129
  Serious: Yes (Other)
  Sender: FDA-Public Use
  Company Number: 2004197401BE

PATIENT
  Sex: Female

DRUGS (1)
  1. MEDROL [Suspect]
     Indication: ACQUIRED EPILEPTIC APHASIA
     Dosage: ORAL
     Route: 048
     Dates: start: 19990701

REACTIONS (2)
  - HYPERTENSION [None]
  - OBESITY [None]
